FAERS Safety Report 18099147 (Version 1)
Quarter: 2020Q3

REPORT INFORMATION
  Report Type: Other
  Country: US (occurrence: US)
  Receive Date: 20200731
  Receipt Date: 20200731
  Transmission Date: 20201103
  Serious: No
  Sender: FDA-Public Use
  Company Number: US-PARATEK PHARMACEUTICALS, INC.-2020PTK00070

PATIENT
  Age: 43 Year
  Sex: Male

DRUGS (8)
  1. BEDAQUILINE [Suspect]
     Active Substance: BEDAQUILINE
     Dosage: UNK
     Dates: end: 201911
  2. FLORASTOR [Concomitant]
     Active Substance: SACCHAROMYCES CEREVISIAE
  3. NYSTATIN. [Concomitant]
     Active Substance: NYSTATIN
  4. VITAMIN D3 [Concomitant]
     Active Substance: CHOLECALCIFEROL
  5. NUZYRA [Suspect]
     Active Substance: OMADACYCLINE
     Dosage: 300 MG, 1X/DAY
     Route: 048
     Dates: start: 201911, end: 201912
  6. L?ARGNININE [Concomitant]
  7. NUZYRA [Suspect]
     Active Substance: OMADACYCLINE
     Dosage: 300 MG, 1X/DAY
     Route: 048
     Dates: start: 20190912, end: 201911
  8. MEPHYTON [Concomitant]
     Active Substance: PHYTONADIONE

REACTIONS (4)
  - Aspartate aminotransferase increased [Recovering/Resolving]
  - Off label use [Recovered/Resolved]
  - Alanine aminotransferase increased [Recovering/Resolving]
  - Incorrect product administration duration [Recovered/Resolved]

NARRATIVE: CASE EVENT DATE: 2019
